FAERS Safety Report 12483562 (Version 1)
Quarter: 2016Q2

REPORT INFORMATION
  Report Type: Spontaneous
  Country: DE (occurrence: DE)
  Receive Date: 20160621
  Receipt Date: 20160621
  Transmission Date: 20160815
  Serious: Yes (Hospitalization)
  Sender: FDA-Public Use
  Company Number: DE-009507513-1606DEU007404

PATIENT
  Age: 59 Year
  Sex: Female

DRUGS (1)
  1. INTRON A [Suspect]
     Active Substance: INTERFERON ALFA-2B
     Indication: MALIGNANT MELANOMA
     Dosage: 3 MILLION IU, THREE TIMES WEEKLY
     Route: 058
     Dates: start: 201501

REACTIONS (1)
  - Latent autoimmune diabetes in adults [Not Recovered/Not Resolved]

NARRATIVE: CASE EVENT DATE: 201604
